FAERS Safety Report 4902164-X (Version None)
Quarter: 2006Q1

REPORT INFORMATION
  Report Type: 
  Country: None (occurrence: None)
  Receive Date: 20060206
  Receipt Date: 20050718
  Transmission Date: 20060701
  Serious: Yes (Hospitalization)
  Sender: FDA-Public Use
  Company Number: US-MERCK-0507USA02268

PATIENT
  Age: 51 Year
  Sex: Male
  Weight: 97 kg

DRUGS (3)
  1. VIOXX [Suspect]
     Indication: ANKYLOSING SPONDYLITIS
     Route: 048
     Dates: start: 20010213
  2. NASACORT [Concomitant]
     Route: 065
  3. ARTIFICIAL TEARS [Concomitant]
     Route: 065

REACTIONS (34)
  - ACUTE MYOCARDIAL INFARCTION [None]
  - AKINESIA [None]
  - ANXIETY [None]
  - AORTIC ARTERIOSCLEROSIS [None]
  - ARTERIOSCLEROSIS CORONARY ARTERY [None]
  - CARDIOMYOPATHY [None]
  - CHEST DISCOMFORT [None]
  - CHEST PAIN [None]
  - CHRONIC OBSTRUCTIVE PULMONARY DISEASE [None]
  - CORONARY ARTERY DISEASE [None]
  - CORONARY ARTERY OCCLUSION [None]
  - CORONARY ARTERY STENOSIS [None]
  - CYST [None]
  - DIZZINESS [None]
  - DYSPNOEA EXERTIONAL [None]
  - EJECTION FRACTION DECREASED [None]
  - ERUCTATION [None]
  - FATIGUE [None]
  - FEAR [None]
  - HEADACHE [None]
  - HYPOTENSION [None]
  - INJURY [None]
  - ISCHAEMIC CARDIOMYOPATHY [None]
  - LOWER RESPIRATORY TRACT INFECTION [None]
  - NON-CARDIAC CHEST PAIN [None]
  - PAIN [None]
  - PALPITATIONS [None]
  - PHOTOSENSITIVITY REACTION [None]
  - PLATELET COUNT INCREASED [None]
  - SLEEP APNOEA SYNDROME [None]
  - TEMPOROMANDIBULAR JOINT SYNDROME [None]
  - THROMBOSIS [None]
  - VENTRICULAR DYSKINESIA [None]
  - VENTRICULAR HYPOKINESIA [None]
